FAERS Safety Report 8157683-2 (Version None)
Quarter: 2012Q1

REPORT INFORMATION
  Report Type: 
  Country: None (occurrence: None)
  Receive Date: 20120222
  Receipt Date: 20120220
  Transmission Date: 20120608
  Serious: Yes (Death)
  Sender: FDA-Public Use
  Company Number: JP-PFIZER INC-2012038831

PATIENT
  Age: 50 Year
  Sex: Male

DRUGS (2)
  1. NORVASC [Suspect]
     Dosage: 50 OR 150 TABS
     Route: 048
     Dates: start: 20120211, end: 20120211
  2. ZOLPIDEM [Concomitant]

REACTIONS (2)
  - INTENTIONAL OVERDOSE [None]
  - DEATH [None]
